FAERS Safety Report 13737684 (Version 2)
Quarter: 2018Q2

REPORT INFORMATION
  Report Type: Spontaneous
  Country: US (occurrence: US)
  Receive Date: 20170710
  Receipt Date: 20180627
  Transmission Date: 20180711
  Serious: Yes (Other)
  Sender: FDA-Public Use
  Company Number: US-SAOL THERAPEUTICS-2016SAO00280

PATIENT
  Sex: Female
  Weight: 40 kg

DRUGS (2)
  1. LIORESAL [Suspect]
     Active Substance: BACLOFEN
     Indication: DYSTONIA
     Dosage: 2197.6 ?G, \DAY
     Route: 037
  2. LIORESAL [Suspect]
     Active Substance: BACLOFEN
     Dosage: 2198.0 ?G, \DAY
     Route: 037
     Dates: start: 20180112

REACTIONS (9)
  - Drug withdrawal syndrome [Recovered/Resolved]
  - Gastrointestinal disorder [Recovered/Resolved]
  - Hypotonia [Recovered/Resolved]
  - Device issue [Recovered/Resolved]
  - Device infusion issue [Recovered/Resolved]
  - Hyperhidrosis [Recovered/Resolved]
  - Insomnia [Recovered/Resolved]
  - Flushing [Recovered/Resolved]
  - Blood pressure fluctuation [Recovered/Resolved]

NARRATIVE: CASE EVENT DATE: 2016
